FAERS Safety Report 21424064 (Version 1)
Quarter: 2022Q4

REPORT INFORMATION
  Report Type: Spontaneous
  Country: RU (occurrence: None)
  Receive Date: 20221007
  Receipt Date: 20221007
  Transmission Date: 20230113
  Serious: Yes (Death)
  Sender: FDA-Public Use
  Company Number: 2022A339180

PATIENT
  Age: 160 Day
  Sex: Female

DRUGS (5)
  1. PULMICORT TURBUHALER [Suspect]
     Active Substance: BUDESONIDE
     Route: 055
  2. DEXAMETHASONE [Concomitant]
     Active Substance: DEXAMETHASONE
  3. TRENTAL [Concomitant]
     Active Substance: PENTOXIFYLLINE
  4. BACPERAZONE [Concomitant]
     Indication: Antibiotic prophylaxis
  5. ATROVENT [Concomitant]
     Active Substance: IPRATROPIUM BROMIDE

REACTIONS (1)
  - Drug ineffective [Fatal]
